FAERS Safety Report 13682809 (Version 1)
Quarter: 2017Q2

REPORT INFORMATION
  Report Type: Spontaneous
  Country: US (occurrence: US)
  Receive Date: 20170623
  Receipt Date: 20170623
  Transmission Date: 20170830
  Serious: No
  Sender: FDA-Public Use
  Company Number: US-MALLINCKRODT-T201700157

PATIENT
  Sex: Female

DRUGS (1)
  1. H.P. ACTHAR [Suspect]
     Active Substance: CORTICOTROPIN
     Indication: SYSTEMIC LUPUS ERYTHEMATOSUS
     Dosage: 80 UNITS TWO TIMES PER WEEKLY
     Route: 058
     Dates: start: 201609

REACTIONS (3)
  - Weight decreased [Recovering/Resolving]
  - Influenza like illness [Recovering/Resolving]
  - Pain [Recovering/Resolving]
